FAERS Safety Report 9614104 (Version 1)
Quarter: 2013Q4

REPORT INFORMATION
  Report Type: Spontaneous
  Country: US (occurrence: US)
  Receive Date: 20131011
  Receipt Date: 20131011
  Transmission Date: 20140711
  Serious: No
  Sender: FDA-Public Use
  Company Number: US-009507513-1310USA005125

PATIENT
  Sex: Female

DRUGS (3)
  1. DULERA [Suspect]
     Indication: CHRONIC OBSTRUCTIVE PULMONARY DISEASE
     Dosage: 4 DF, QD
     Route: 055
     Dates: start: 201110
  2. SPIRIVA [Concomitant]
  3. ALBUTEROL SULFATE [Concomitant]

REACTIONS (2)
  - Oropharyngeal pain [Recovering/Resolving]
  - Product quality issue [Unknown]
